FAERS Safety Report 5010076-9 (Version None)
Quarter: 2006Q2

REPORT INFORMATION
  Report Type: 
  Country: None (occurrence: None)
  Receive Date: 20060524
  Receipt Date: 20051010
  Transmission Date: 20061013
  Serious: Yes (Other)
  Sender: FDA-Public Use
  Company Number: US-AMGEN-US155362

PATIENT
  Sex: Male

DRUGS (8)
  1. ENBREL [Suspect]
     Indication: PSORIASIS
     Dates: start: 20040601, end: 20041201
  2. RAPTIVA [Concomitant]
     Dates: start: 20050301
  3. PREVACID [Concomitant]
  4. LIPITOR [Concomitant]
  5. DIOVAN [Concomitant]
  6. VIAGRA [Concomitant]
  7. DOVONEX [Concomitant]
  8. ACLOVATE [Concomitant]

REACTIONS (3)
  - GASTROINTESTINAL CARCINOMA [None]
  - METASTASES TO LIVER [None]
  - POLYCYTHAEMIA VERA [None]
